FAERS Safety Report 11347145 (Version 1)
Quarter: 2015Q3

REPORT INFORMATION
  Report Type: Spontaneous
  Country: US (occurrence: US)
  Receive Date: 20150806
  Receipt Date: 20150806
  Transmission Date: 20151125
  Serious: No
  Sender: FDA-Public Use
  Company Number: US-FRESENIUS KABI-FK201404684

PATIENT
  Age: 84 Year
  Sex: Female
  Weight: 53.57 kg

DRUGS (4)
  1. CYANOCOBALAMIN INJECTION, USP [Suspect]
     Active Substance: CYANOCOBALAMIN
     Indication: VITAMIN B12 DEFICIENCY
     Route: 030
     Dates: start: 20141023
  2. EYE DROPS [Concomitant]
     Active Substance: TETRAHYDROZOLINE HYDROCHLORIDE
     Indication: RETINAL VEIN OCCLUSION
     Route: 047
  3. BABY ASPIRIN [Concomitant]
     Active Substance: ASPIRIN
     Indication: PRODUCT USED FOR UNKNOWN INDICATION
     Route: 065
  4. SYNTHROID [Concomitant]
     Active Substance: LEVOTHYROXINE SODIUM
     Indication: HYPOTHYROIDISM
     Route: 065

REACTIONS (1)
  - Hypersensitivity [Recovered/Resolved]

NARRATIVE: CASE EVENT DATE: 20141023
